FAERS Safety Report 12223298 (Version 2)
Quarter: 2016Q2

REPORT INFORMATION
  Report Type: Spontaneous
  Country: US (occurrence: US)
  Receive Date: 20160330
  Receipt Date: 20160418
  Transmission Date: 20160815
  Serious: No
  Sender: FDA-Public Use
  Company Number: US-MDT-ADR-2016-00594

PATIENT
  Age: 62 Year
  Sex: Female

DRUGS (1)
  1. BACLOFEN, UNKNOWN [Suspect]
     Active Substance: BACLOFEN
     Dosage: 99.92 MCG/DAY
     Route: 037

REACTIONS (4)
  - Muscle spasms [Recovered/Resolved]
  - No therapeutic response [Recovered/Resolved]
  - Tremor [Recovered/Resolved]
  - Fall [Recovered/Resolved]
